FAERS Safety Report 25519781 (Version 1)
Quarter: 2025Q3

REPORT INFORMATION
  Report Type: Report from Study
  Country: US (occurrence: US)
  Receive Date: 20250704
  Receipt Date: 20250704
  Transmission Date: 20251020
  Serious: Yes (Hospitalization)
  Sender: TAIHO ONCOLOGY INC
  Company Number: US-TAIHOP-2025-004297

PATIENT
  Age: 80 Year
  Sex: Female
  Weight: 75.93 kg

DRUGS (1)
  1. LONSURF [Suspect]
     Active Substance: TIPIRACIL HYDROCHLORIDE\TRIFLURIDINE
     Indication: Colon cancer
     Dosage: FORM STRENGTH UNKNOWN?CYCLE 7
     Route: 048
     Dates: start: 20230710

REACTIONS (4)
  - Hypertension [Unknown]
  - Cardiac failure congestive [Unknown]
  - Pain [Unknown]
  - Neuropathy peripheral [Unknown]
